FAERS Safety Report 9967217 (Version 2)
Quarter: 2014Q1

REPORT INFORMATION
  Report Type: Report from Study
  Country: US (occurrence: US)
  Receive Date: 20140305
  Receipt Date: 20140305
  Transmission Date: 20141002
  Serious: No
  Sender: FDA-Public Use
  Company Number: US-ABBVIE-13P-163-1105628-00

PATIENT
  Age: 32 Year
  Sex: Female

DRUGS (5)
  1. HUMIRA [Suspect]
     Indication: RHEUMATOID ARTHRITIS
     Dates: start: 20130529
  2. SYMBICORT [Concomitant]
     Indication: ASTHMA
     Dosage: 1-2 TIMES A DAY AS NEEDED
  3. ACNE TOPICAL CREAM (STARTS WITH AN ^X^) [Concomitant]
     Indication: ACNE
     Dosage: ONCE DAILY
  4. ACXION TOPICAL CREAM [Concomitant]
     Indication: ACNE
     Dosage: ONCE DAILY
  5. DEPO-PROVERA [Concomitant]
     Indication: CONTRACEPTION

REACTIONS (5)
  - Injection site pain [Recovered/Resolved]
  - Injection site pain [Recovered/Resolved]
  - Injection site irritation [Recovered/Resolved]
  - Injection site pain [Recovered/Resolved]
  - Injection site nodule [Recovered/Resolved]
